FAERS Safety Report 14378476 (Version 1)
Quarter: 2018Q1

REPORT INFORMATION
  Report Type: Spontaneous
  Country: US (occurrence: US)
  Receive Date: 20180112
  Receipt Date: 20180112
  Transmission Date: 20180509
  Serious: Yes (Congenital Anomaly, Other)
  Sender: FDA-Public Use
  Company Number: US-ABBVIE-18P-163-2214969-00

PATIENT
  Sex: Male

DRUGS (1)
  1. DEPAKOTE [Suspect]
     Active Substance: DIVALPROEX SODIUM
     Indication: MATERNAL EXPOSURE TIMING UNSPECIFIED
     Route: 064

REACTIONS (22)
  - Abnormal behaviour [Unknown]
  - Nervous system disorder [Unknown]
  - Hypotonia [Unknown]
  - Speech disorder [Unknown]
  - Brachycephaly [Unknown]
  - Cognitive disorder [Unknown]
  - Atrial septal defect [Unknown]
  - Limb malformation [Unknown]
  - Foetal anticonvulsant syndrome [Unknown]
  - Fine motor delay [Unknown]
  - Gross motor delay [Unknown]
  - Language disorder [Unknown]
  - Congenital joint malformation [Unknown]
  - Hypospadias [Unknown]
  - Foetal exposure during pregnancy [Unknown]
  - Ventricular septal defect [Unknown]
  - Congenital hand malformation [Unknown]
  - Brachydactyly [Unknown]
  - Joint laxity [Unknown]
  - Developmental delay [Unknown]
  - Mental impairment [Unknown]
  - Dysmorphism [Unknown]
